FAERS Safety Report 20223441 (Version 1)
Quarter: 2021Q4

REPORT INFORMATION
  Report Type: Report from Study
  Country: TW (occurrence: TW)
  Receive Date: 20211223
  Receipt Date: 20211223
  Transmission Date: 20220303
  Serious: Yes (Hospitalization)
  Sender: FDA-Public Use
  Company Number: TW-NOVOPROD-872774

PATIENT
  Age: 49 Year
  Sex: Female
  Weight: 59 kg

DRUGS (4)
  1. SEMAGLUTIDE [Suspect]
     Active Substance: SEMAGLUTIDE
     Indication: Type 2 diabetes mellitus
     Dosage: 1.0,MG,ONCE PER WEEK
     Route: 058
     Dates: start: 20210913, end: 20211130
  2. SEMAGLUTIDE [Suspect]
     Active Substance: SEMAGLUTIDE
     Dosage: 0.5 MG, QW
     Route: 058
     Dates: start: 20211213
  3. BOKEY [Concomitant]
  4. CILOSTAZOL [Concomitant]
     Active Substance: CILOSTAZOL

REACTIONS (1)
  - Chronic gastritis [Recovered/Resolved]

NARRATIVE: CASE EVENT DATE: 20211130
